FAERS Safety Report 7207876-3 (Version None)
Quarter: 2010Q4

REPORT INFORMATION
  Report Type: 
  Country: None (occurrence: None)
  Receive Date: 20101221
  Receipt Date: 20101215
  Transmission Date: 20110411
  Serious: Yes (Hospitalization, Other)
  Sender: FDA-Public Use
  Company Number: 2010SP064942

PATIENT
  Age: 11 Year
  Sex: Male

DRUGS (2)
  1. TEMODAL [Suspect]
     Indication: MEDULLOBLASTOMA RECURRENT
     Dosage: ; PO
     Route: 048
  2. ETOPOSIDE [Suspect]
     Indication: MEDULLOBLASTOMA RECURRENT
     Dosage: ; PO
     Route: 048

REACTIONS (2)
  - FOCAL NODULAR HYPERPLASIA [None]
  - PNEUMONIA [None]
